FAERS Safety Report 11802489 (Version 2)
Quarter: 2015Q4

REPORT INFORMATION
  Report Type: Spontaneous
  Country: TR (occurrence: TR)
  Receive Date: 20151204
  Receipt Date: 20151210
  Transmission Date: 20160305
  Serious: Yes (Life-Threatening, Hospitalization, Other)
  Sender: FDA-Public Use
  Company Number: TR-APOTEX-2015AP014909

PATIENT
  Age: 14 Year
  Sex: Male

DRUGS (1)
  1. ALPRAZOLAM. [Suspect]
     Active Substance: ALPRAZOLAM
     Indication: GENERALISED ANXIETY DISORDER
     Dosage: 1 MG/DAY
     Route: 065

REACTIONS (6)
  - Anger [Recovered/Resolved]
  - Suicidal behaviour [Recovered/Resolved]
  - Suicidal ideation [Recovered/Resolved]
  - Self injurious behaviour [Recovered/Resolved]
  - Irritability [Recovered/Resolved]
  - Aggression [Recovered/Resolved]
